FAERS Safety Report 21666675 (Version 2)
Quarter: 2023Q1

REPORT INFORMATION
  Report Type: Spontaneous
  Country: GB (occurrence: GB)
  Receive Date: 20221201
  Receipt Date: 20230201
  Transmission Date: 20230417
  Serious: Yes (Other)
  Sender: FDA-Public Use
  Company Number: GB-BIOGEN-2022BI01172581

PATIENT
  Sex: Female

DRUGS (1)
  1. TYSABRI [Suspect]
     Active Substance: NATALIZUMAB
     Indication: Product used for unknown indication
     Route: 050

REACTIONS (1)
  - Pulmonary embolism [Unknown]
